FAERS Safety Report 25736840 (Version 1)
Quarter: 2025Q3

REPORT INFORMATION
  Report Type: Spontaneous
  Country: US (occurrence: US)
  Receive Date: 20250828
  Receipt Date: 20250828
  Transmission Date: 20251021
  Serious: Yes (Hospitalization, Other)
  Sender: AMGEN
  Company Number: US-AMGEN-USASP2025166656

PATIENT
  Age: 73 Year
  Sex: Female

DRUGS (28)
  1. PREDNISONE [Suspect]
     Active Substance: PREDNISONE
     Indication: Systemic scleroderma
     Route: 065
  2. PREDNISONE [Suspect]
     Active Substance: PREDNISONE
     Route: 065
  3. PREDNISONE [Suspect]
     Active Substance: PREDNISONE
     Route: 065
  4. PREDNISONE [Suspect]
     Active Substance: PREDNISONE
     Route: 065
  5. PREDNISONE [Suspect]
     Active Substance: PREDNISONE
     Route: 065
  6. PREDNISONE [Suspect]
     Active Substance: PREDNISONE
     Route: 065
  7. PREDNISONE [Suspect]
     Active Substance: PREDNISONE
     Dosage: 30 MILLIGRAM, QD
     Route: 065
  8. PREDNISONE [Suspect]
     Active Substance: PREDNISONE
     Dosage: 15 MILLIGRAM, QD
     Route: 065
  9. PREDNISONE [Suspect]
     Active Substance: PREDNISONE
     Dosage: 30 MILLIGRAM, QD
     Route: 065
  10. PREDNISONE [Suspect]
     Active Substance: PREDNISONE
     Route: 065
  11. BEVACIZUMAB [Suspect]
     Active Substance: BEVACIZUMAB
     Indication: Retinal neovascularisation
  12. BEVACIZUMAB [Suspect]
     Active Substance: BEVACIZUMAB
     Indication: Retinal haemorrhage
  13. HYDROXYCHLOROQUINE [Concomitant]
     Active Substance: HYDROXYCHLOROQUINE
  14. METHOTREXATE [Concomitant]
     Active Substance: METHOTREXATE
  15. ROSUVASTATIN [Concomitant]
     Active Substance: ROSUVASTATIN
  16. RAMIPRIL [Concomitant]
     Active Substance: RAMIPRIL
  17. BUPROPION [Concomitant]
     Active Substance: BUPROPION
  18. FAMOTIDINE [Concomitant]
     Active Substance: FAMOTIDINE
  19. FOLIC ACID [Concomitant]
     Active Substance: FOLIC ACID
  20. VITAMIN D3 [Concomitant]
     Active Substance: CHOLECALCIFEROL
  21. B complex + vitamin c [Concomitant]
  22. VITAMINS [Concomitant]
     Active Substance: VITAMINS
  23. METHYLPREDNISOLONE [Concomitant]
     Active Substance: METHYLPREDNISOLONE
     Indication: Amaurosis fugax
     Dosage: 250 MILLIGRAM, Q6H
     Route: 040
  24. ASPIRIN [Concomitant]
     Active Substance: ASPIRIN
     Indication: Amaurosis fugax
     Dosage: 81 MILLIGRAM, QD
     Route: 065
  25. ASPIRIN [Concomitant]
     Active Substance: ASPIRIN
     Indication: Giant cell arteritis
  26. CLOPIDOGREL [Concomitant]
     Active Substance: CLOPIDOGREL BISULFATE
     Indication: Amaurosis fugax
  27. CLOPIDOGREL [Concomitant]
     Active Substance: CLOPIDOGREL BISULFATE
     Dosage: 75 MILLIGRAM, QD (FOR 21 DAYS)
  28. TOCILIZUMAB [Concomitant]
     Active Substance: TOCILIZUMAB
     Indication: Systemic scleroderma
     Route: 065

REACTIONS (19)
  - Retinal artery occlusion [Unknown]
  - Embolism [Unknown]
  - Aortic valve stenosis [Unknown]
  - Visual impairment [Unknown]
  - Amaurosis fugax [Unknown]
  - Nephrolithiasis [Unknown]
  - Pupillary reflex impaired [Unknown]
  - Aortic valve calcification [Unknown]
  - Atrial tachycardia [Unknown]
  - Retinal neovascularisation [Unknown]
  - Retinal haemorrhage [Unknown]
  - Optic atrophy [Recovering/Resolving]
  - Retinal degeneration [Unknown]
  - Drug effective for unapproved indication [Unknown]
  - Eye haemorrhage [Unknown]
  - C-reactive protein increased [Unknown]
  - Red blood cell sedimentation rate increased [Unknown]
  - Visual field tests abnormal [Unknown]
  - Off label use [Unknown]
